FAERS Safety Report 5746982-7 (Version None)
Quarter: 2008Q2

REPORT INFORMATION
  Report Type: 
  Country: None (occurrence: None)
  Receive Date: 20080522
  Receipt Date: 20080515
  Transmission Date: 20081010
  Serious: Yes (Other)
  Sender: FDA-Public Use
  Company Number: BR-PFIZER INC-2008042422

PATIENT
  Sex: Male

DRUGS (2)
  1. VIAGRA [Suspect]
     Indication: ERECTILE DYSFUNCTION
     Route: 048
  2. CO-RENITEC [Concomitant]
     Route: 065

REACTIONS (4)
  - DEPRESSED MOOD [None]
  - DEPRESSION [None]
  - HAND FRACTURE [None]
  - LOWER LIMB FRACTURE [None]
